FAERS Safety Report 18724421 (Version 2)
Quarter: 2021Q1

REPORT INFORMATION
  Report Type: Spontaneous
  Country: US (occurrence: US)
  Receive Date: 20210111
  Receipt Date: 20210114
  Transmission Date: 20210419
  Serious: No
  Sender: FDA-Public Use
  Company Number: US-PFIZER INC-2021006202

PATIENT
  Sex: Female

DRUGS (2)
  1. NEURONTIN [Suspect]
     Active Substance: GABAPENTIN
     Dosage: 100 MG, 2X/DAY
  2. NEURONTIN [Suspect]
     Active Substance: GABAPENTIN
     Indication: ERYTHROMELALGIA
     Dosage: UNK UNK, 2X/DAY (100MG IN THE MORNING AND 200MG AT NIGHT BY MOUTH)
     Route: 048

REACTIONS (3)
  - Sleep disorder [Unknown]
  - Off label use [Unknown]
  - Insomnia [Unknown]
